FAERS Safety Report 18447470 (Version 3)
Quarter: 2021Q1

REPORT INFORMATION
  Report Type: Spontaneous
  Country: US (occurrence: US)
  Receive Date: 20201101
  Receipt Date: 20210316
  Transmission Date: 20210419
  Serious: Yes (Other)
  Sender: FDA-Public Use
  Company Number: US-SA-2020SA305440

PATIENT
  Age: 41 Year
  Sex: Female

DRUGS (1)
  1. LEMTRADA [Suspect]
     Active Substance: ALEMTUZUMAB
     Indication: MULTIPLE SCLEROSIS
     Dosage: 12 MG, QD
     Route: 041
     Dates: start: 20201019, end: 20201021

REACTIONS (3)
  - Inappropriate schedule of product administration [Unknown]
  - Unevaluable event [Unknown]
  - Urinary retention [Unknown]

NARRATIVE: CASE EVENT DATE: 202010
